FAERS Safety Report 19564365 (Version 1)
Quarter: 2021Q3

REPORT INFORMATION
  Report Type: Spontaneous
  Country: US (occurrence: US)
  Receive Date: 20210716
  Receipt Date: 20210716
  Transmission Date: 20211014
  Serious: Yes (Hospitalization)
  Sender: FDA-Public Use
  Company Number: None

PATIENT
  Age: 90 Year
  Sex: Female

DRUGS (3)
  1. CYPROHEPTAD [Concomitant]
     Dates: start: 20210104
  2. LANTUS SOLOS INJ [Concomitant]
     Dates: start: 20201112
  3. RETACRIT [Suspect]
     Active Substance: EPOETIN ALFA-EPBX
     Indication: IRON DEFICIENCY ANAEMIA
     Dosage: OTHER FREQUENCY:EVERY 14 DAYS;?
     Route: 058
     Dates: start: 20200601

REACTIONS (3)
  - Cardiac failure [None]
  - Dehydration [None]
  - Urinary tract infection [None]

NARRATIVE: CASE EVENT DATE: 20210715
